FAERS Safety Report 14851999 (Version 1)
Quarter: 2018Q2

REPORT INFORMATION
  Report Type: Spontaneous
  Country: FR (occurrence: FR)
  Receive Date: 20180507
  Receipt Date: 20180507
  Transmission Date: 20180711
  Serious: Yes (Other)
  Sender: FDA-Public Use
  Company Number: FR-MERCK KGAA-2047295

PATIENT
  Age: 34 Year
  Sex: Male

DRUGS (4)
  1. LEVOTHYROX NF [Suspect]
     Active Substance: LEVOTHYROXINE SODIUM
     Dates: start: 2017
  2. LEVOTHYROX NF [Suspect]
     Active Substance: LEVOTHYROXINE SODIUM
     Dates: start: 2017
  3. NOVOTHYROX [Suspect]
     Active Substance: LEVOTHYROXINE SODIUM
     Indication: AUTOIMMUNE THYROIDITIS
     Dates: start: 2017
  4. LEVOTHYROX NF [Suspect]
     Active Substance: LEVOTHYROXINE SODIUM
     Dates: start: 2017

REACTIONS (18)
  - Mood swings [None]
  - Somnolence [None]
  - Weight increased [None]
  - Diarrhoea [None]
  - Irritability [None]
  - Aggression [None]
  - Social avoidant behaviour [None]
  - Migraine [None]
  - Vertigo [None]
  - Asthenia [None]
  - Blood pressure decreased [Recovered/Resolved]
  - Fatigue [None]
  - Loss of personal independence in daily activities [None]
  - Back pain [None]
  - Blood thyroid stimulating hormone increased [Recovered/Resolved]
  - Suicidal ideation [None]
  - Alopecia [None]
  - Hot flush [None]

NARRATIVE: CASE EVENT DATE: 2017
